FAERS Safety Report 5513541-0 (Version None)
Quarter: 2007Q4

REPORT INFORMATION
  Report Type: 
  Country: None (occurrence: None)
  Receive Date: 20071108
  Receipt Date: 20071024
  Transmission Date: 20080405
  Serious: Yes (Death, Hospitalization)
  Sender: FDA-Public Use
  Company Number: MEDI-0005351

PATIENT
  Age: 14 Month
  Sex: Male
  Weight: 8 kg

DRUGS (8)
  1. SYNAGIS [Suspect]
     Indication: ANTIVIRAL PROPHYLAXIS
     Dosage: 120 MG, INTRAMUSCULAR; 120 MG, INTRAMUSCULAR
     Route: 030
     Dates: start: 20061114, end: 20061211
  2. SYNAGIS [Suspect]
     Indication: ANTIVIRAL PROPHYLAXIS
     Dosage: 120 MG, INTRAMUSCULAR; 120 MG, INTRAMUSCULAR
     Route: 030
     Dates: start: 20061114
  3. ATROVENT [Concomitant]
  4. AMOXICLAV (AMOXICILLIN, CLAVULANIC ACID) [Concomitant]
  5. MOTILIUM [Concomitant]
  6. LOSEC-MUPS (AMOXICILLIN TRIHYDRATE, CLARITHROMYCIN, OMEPRAZOLE MAGNESI [Concomitant]
  7. VENTOLIN [Concomitant]
  8. PULMICORT [Concomitant]

REACTIONS (12)
  - ASPIRATION [None]
  - ATELECTASIS [None]
  - DEPRESSED LEVEL OF CONSCIOUSNESS [None]
  - LUNG DISORDER [None]
  - MEDIASTINAL SHIFT [None]
  - OXYGEN SATURATION DECREASED [None]
  - RESPIRATORY DISORDER [None]
  - RESPIRATORY FAILURE [None]
  - RHONCHI [None]
  - SUPERINFECTION [None]
  - TACHYPNOEA [None]
  - VOMITING [None]
